FAERS Safety Report 7249264-X (Version None)
Quarter: 2011Q1

REPORT INFORMATION
  Report Type: 
  Country: None (occurrence: None)
  Receive Date: 20110128
  Receipt Date: 20101206
  Transmission Date: 20110831
  Serious: Yes (Other)
  Sender: FDA-Public Use
  Company Number: US-BAYER-2010-002627

PATIENT
  Sex: Female

DRUGS (1)
  1. AVELOX [Suspect]
     Indication: BRONCHITIS
     Dosage: 400 MG, ONCE
     Dates: start: 20101203, end: 20101203

REACTIONS (4)
  - HYPOAESTHESIA [None]
  - FEELING JITTERY [None]
  - ANXIETY [None]
  - CHEST PAIN [None]
